FAERS Safety Report 21840474 (Version 1)
Quarter: 2023Q1

REPORT INFORMATION
  Report Type: Spontaneous
  Country: DE (occurrence: DE)
  Receive Date: 20230110
  Receipt Date: 20230110
  Transmission Date: 20230418
  Serious: Yes (Hospitalization, Other)
  Sender: FDA-Public Use
  Company Number: DE-DCGMA-22197103

PATIENT
  Age: 71 Year
  Sex: Female
  Weight: 93 kg

DRUGS (1)
  1. CARBOPLATIN [Suspect]
     Active Substance: CARBOPLATIN
     Indication: Ovarian cancer
     Route: 042

REACTIONS (5)
  - Sensory loss [Unknown]
  - Unresponsive to stimuli [Unknown]
  - Chest discomfort [Unknown]
  - Hypotension [Unknown]
  - Pruritus [Unknown]

NARRATIVE: CASE EVENT DATE: 20220211
